FAERS Safety Report 6801502-0 (Version None)
Quarter: 2010Q2

REPORT INFORMATION
  Report Type: 
  Country: None (occurrence: None)
  Receive Date: 20100629
  Receipt Date: 20100615
  Transmission Date: 20101027
  Serious: Yes (Death)
  Sender: FDA-Public Use
  Company Number: MX-GENENTECH-302721

PATIENT
  Age: 30 Year
  Sex: Male

DRUGS (1)
  1. MABTHERA [Suspect]
     Indication: LYMPHOMA
     Dosage: UNK UNK, UNKNOWN
     Route: 042

REACTIONS (5)
  - CRANIAL NERVE DISORDER [None]
  - CYTOKINE RELEASE SYNDROME [None]
  - HYPERTENSION [None]
  - POLYNEUROPATHY [None]
  - TACHYCARDIA [None]
